FAERS Safety Report 8687366 (Version 2)
Quarter: 2012Q4

REPORT INFORMATION
  Report Type: 
  Country: US (occurrence: US)
  Receive Date: 20120727
  Receipt Date: 20121011
  Transmission Date: 20130627
  Serious: Yes (Other)
  Sender: FDA-Public Use
  Company Number: US-PFIZER INC-2012177794

PATIENT
  Age: 32 Year
  Sex: Female
  Weight: 65.76 kg

DRUGS (4)
  1. CHANTIX [Suspect]
     Indication: SMOKING CESSATION THERAPY
     Dosage: 0.5 mg, daily
     Route: 048
     Dates: start: 20120701, end: 201207
  2. CHANTIX [Suspect]
     Indication: TOBACCO ABUSE
     Dosage: 0.5 mg, 2x/day
     Route: 048
     Dates: start: 201207, end: 201207
  3. CHANTIX [Suspect]
     Dosage: 1 mg, 2x/day
     Route: 048
     Dates: start: 201207, end: 20120713
  4. ADVIL [Concomitant]
     Indication: BACK PAIN
     Dosage: UNK, as needed

REACTIONS (8)
  - Loss of consciousness [Unknown]
  - Road traffic accident [Unknown]
  - Aggression [Not Recovered/Not Resolved]
  - Nausea [Recovered/Resolved]
  - Headache [Recovered/Resolved]
  - Constipation [Recovered/Resolved]
  - Initial insomnia [Recovered/Resolved]
  - Emotional disorder [Not Recovered/Not Resolved]
